FAERS Safety Report 11575698 (Version 1)
Quarter: 2015Q3

REPORT INFORMATION
  Report Type: Spontaneous
  Country: IT (occurrence: IT)
  Receive Date: 20150930
  Receipt Date: 20150930
  Transmission Date: 20151125
  Serious: Yes (Other)
  Sender: FDA-Public Use
  Company Number: IT-WATSON-2015-19004

PATIENT
  Age: 44 Year
  Sex: Female

DRUGS (6)
  1. PATROL [Suspect]
     Active Substance: ACETAMINOPHEN\TRAMADOL HYDROCHLORIDE
     Indication: PRODUCT USED FOR UNKNOWN INDICATION
     Dosage: 1 DF, TOTAL
     Route: 048
     Dates: start: 20150901, end: 20150901
  2. EUTIROX [Concomitant]
     Active Substance: LEVOTHYROXINE SODIUM
     Indication: PRODUCT USED FOR UNKNOWN INDICATION
     Dosage: UNK
     Route: 065
  3. ZOLPIDEM [Suspect]
     Active Substance: ZOLPIDEM\ZOLPIDEM TARTRATE
     Indication: PRODUCT USED FOR UNKNOWN INDICATION
     Dosage: 1 DF, TOTAL
     Route: 048
     Dates: start: 20150901, end: 20150901
  4. DIFMETRE [Suspect]
     Active Substance: CAFFEINE\INDOMETHACIN\PROCHLORPERAZINE MALEATE
     Indication: PRODUCT USED FOR UNKNOWN INDICATION
     Dosage: 2 DF, TOTAL
     Route: 048
     Dates: start: 20150901, end: 20150901
  5. DIFMETRE [Suspect]
     Active Substance: CAFFEINE\INDOMETHACIN\PROCHLORPERAZINE MALEATE
     Indication: PRODUCT USED FOR UNKNOWN INDICATION
     Dosage: 2 DF, TOTAL
     Route: 054
     Dates: start: 20150901, end: 20150901
  6. VALIUM [Suspect]
     Active Substance: DIAZEPAM
     Indication: PRODUCT USED FOR UNKNOWN INDICATION
     Dosage: 25 DF, TOTAL
     Route: 048
     Dates: start: 20150901, end: 20150901

REACTIONS (3)
  - Drug abuse [Recovering/Resolving]
  - Sopor [Recovering/Resolving]
  - Suicide attempt [Recovering/Resolving]

NARRATIVE: CASE EVENT DATE: 20150902
